FAERS Safety Report 18873787 (Version 5)
Quarter: 2021Q1

REPORT INFORMATION
  Report Type: Report from Study
  Country: CN (occurrence: CN)
  Receive Date: 20210210
  Receipt Date: 20210312
  Transmission Date: 20210420
  Serious: Yes (Death, Other)
  Sender: FDA-Public Use
  Company Number: CN-EISAI MEDICAL RESEARCH-EC-2021-087734

PATIENT
  Age: 63 Year
  Sex: Female
  Weight: 65 kg

DRUGS (21)
  1. LENVATINIB [Suspect]
     Active Substance: LENVATINIB
     Indication: ENDOMETRIAL CANCER
     Route: 048
     Dates: start: 20201120, end: 20201210
  2. SHEN KANG ZHU SHE YE [Concomitant]
     Route: 042
     Dates: start: 20201223, end: 20210113
  3. LENVATINIB [Suspect]
     Active Substance: LENVATINIB
     Route: 048
     Dates: start: 20210114
  4. LEVOTHYROXINE SODIUM. [Concomitant]
     Active Substance: LEVOTHYROXINE SODIUM
     Dates: start: 20201112, end: 20201226
  5. SODIUM BICARBONATE. [Concomitant]
     Active Substance: SODIUM BICARBONATE
     Dates: start: 20201231, end: 20210113
  6. GLYCERIN. [Concomitant]
     Active Substance: GLYCERIN
     Dates: start: 20210101, end: 20210101
  7. PEMBROLIZUMAB. [Suspect]
     Active Substance: PEMBROLIZUMAB
     Route: 041
     Dates: start: 20201211, end: 20201211
  8. BUPLEURUM [Concomitant]
     Dates: start: 20201231, end: 20210113
  9. FELODIPINE. [Concomitant]
     Active Substance: FELODIPINE
     Dates: start: 20201112, end: 20201226
  10. CEFTRIAXONE. [Concomitant]
     Active Substance: CEFTRIAXONE
     Route: 042
     Dates: start: 20201220, end: 20201225
  11. TATHION [Concomitant]
     Active Substance: GLUTATHIONE
     Route: 042
     Dates: start: 20201231, end: 20210113
  12. ACETAMINOPHEN PLUS DIHYDROCODEINE BITARTRATE [Concomitant]
     Dates: start: 202008, end: 20201226
  13. GAI SAN CHUN [Concomitant]
     Dates: start: 20201231, end: 20210113
  14. LACTULOSE. [Concomitant]
     Active Substance: LACTULOSE
     Route: 042
     Dates: start: 20210101, end: 20210126
  15. SI MO TANG [Concomitant]
     Dates: start: 20210101, end: 20210107
  16. LENVATINIB [Suspect]
     Active Substance: LENVATINIB
     Route: 048
     Dates: start: 20201214, end: 20201224
  17. PEMBROLIZUMAB. [Suspect]
     Active Substance: PEMBROLIZUMAB
     Indication: ENDOMETRIAL CANCER
     Route: 041
     Dates: start: 20201120, end: 20201120
  18. BENAZEPRIL HYDROCHLORIDE. [Concomitant]
     Active Substance: BENAZEPRIL HYDROCHLORIDE
     Dates: start: 20201112, end: 20201226
  19. OXYCODONE HYDROCHLORIDE. [Concomitant]
     Active Substance: OXYCODONE HYDROCHLORIDE
     Dates: start: 20200105, end: 20210105
  20. FEBUXOSTAT. [Concomitant]
     Active Substance: FEBUXOSTAT
     Dates: start: 20201231, end: 20210113
  21. MEPERIDINE HYDROCHLORIDE. [Concomitant]
     Active Substance: MEPERIDINE HYDROCHLORIDE
     Route: 042
     Dates: start: 20210104, end: 20210104

REACTIONS (1)
  - Deep vein thrombosis [Not Recovered/Not Resolved]

NARRATIVE: CASE EVENT DATE: 20210104
